FAERS Safety Report 8187492-X (Version None)
Quarter: 2012Q1

REPORT INFORMATION
  Report Type: 
  Country: None (occurrence: None)
  Receive Date: 20120217
  Receipt Date: 20111014
  Transmission Date: 20120608
  Serious: Yes (Other)
  Sender: FDA-Public Use
  Company Number: AUR-APL-2011-05361

PATIENT
  Sex: Female
  Weight: 55.7924 kg

DRUGS (2)
  1. SIMVASTATIN [Suspect]
     Indication: BLOOD CHOLESTEROL INCREASED
     Dosage: (1 DOSAGE FORMS, 1 D), ORAL
     Route: 048
  2. FOSAMAX [Concomitant]

REACTIONS (1)
  - ALOPECIA [None]
